FAERS Safety Report 4354119-4 (Version None)
Quarter: 2004Q2

REPORT INFORMATION
  Report Type: 
  Country: None (occurrence: None)
  Receive Date: 20040503
  Receipt Date: 20040427
  Transmission Date: 20050107
  Serious: Yes (Death, Hospitalization)
  Sender: FDA-Public Use
  Company Number: F01200400389

PATIENT
  Age: 65 Year
  Sex: Male

DRUGS (8)
  1. (OXALIPLATIN) - SOLUTION - 193 MG [Suspect]
     Indication: COLORECTAL CANCER METASTATIC
     Dosage: 193 MG Q3W INTRAVENOUS
     Route: 042
     Dates: start: 20040223, end: 20040223
  2. CAPECITABINE-TABLET-1600 MG [Suspect]
     Dosage: 1600 MG/DAY FROM 1 TO DAY 14, Q3W ORAL
     Route: 048
     Dates: start: 20040223, end: 20040223
  3. DARVOCET (DEXTROPOXYPHEN NAPSILATE+PARACETAMOL) [Concomitant]
  4. MEGACE [Concomitant]
  5. COMPAZINE (PROCHLOPERAZINE EDISYLATE) [Concomitant]
  6. PROCRIT (ERYTHROPOIETIN) [Concomitant]
  7. OXYCONTIN [Concomitant]
  8. LOMOTIL [Concomitant]

REACTIONS (14)
  - ABDOMINAL PAIN [None]
  - AZOTAEMIA [None]
  - BLOOD ALBUMIN DECREASED [None]
  - BLOOD BILIRUBIN INCREASED [None]
  - BLOOD CREATININE INCREASED [None]
  - BLOOD GLUCOSE DECREASED [None]
  - DEHYDRATION [None]
  - DIARRHOEA [None]
  - MUCOSAL INFLAMMATION [None]
  - NAUSEA [None]
  - NEUTROPENIA [None]
  - PERITONEAL ADHESIONS [None]
  - PNEUMONIA [None]
  - VOMITING [None]
